FAERS Safety Report 10645402 (Version 1)
Quarter: 2014Q4

REPORT INFORMATION
  Report Type: Spontaneous
  Country: US (occurrence: None)
  Receive Date: 20141209
  Receipt Date: 20141209
  Transmission Date: 20150529
  Serious: Yes (Hospitalization)
  Sender: FDA-Public Use
  Company Number: US-LHC-2014110

PATIENT
  Age: 7 Year
  Sex: Male

DRUGS (1)
  1. CARBON DIOXIDE. [Suspect]
     Active Substance: CARBON DIOXIDE
     Indication: APPENDICECTOMY
     Dosage: TO 12 MM HG, INSUFFLATION

REACTIONS (9)
  - Post procedural complication [None]
  - Mesenteric vein thrombosis [None]
  - Hyperhidrosis [None]
  - Pneumoperitoneum [None]
  - Intestinal ischaemia [None]
  - Tachycardia [None]
  - Urine output decreased [None]
  - Somnolence [None]
  - Ascites [None]
